FAERS Safety Report 6212355-6 (Version None)
Quarter: 2009Q2

REPORT INFORMATION
  Report Type: 
  Country: None (occurrence: None)
  Receive Date: 20090529
  Receipt Date: 20090514
  Transmission Date: 20091009
  Serious: Yes (Hospitalization)
  Sender: FDA-Public Use
  Company Number: 2009005999

PATIENT
  Age: 79 Year
  Sex: Male

DRUGS (1)
  1. TREANDA [Suspect]
     Indication: NON-HODGKIN'S LYMPHOMA
     Dosage: (90 MG/M2, DAYS 1 AND 8 PER CYCLE),INTRAVENOUS
     Route: 042
     Dates: start: 20090201

REACTIONS (2)
  - ENCEPHALOPATHY [None]
  - PARAPARESIS [None]
